FAERS Safety Report 5163806-X (Version None)
Quarter: 2006Q4

REPORT INFORMATION
  Report Type: 
  Country: None (occurrence: None)
  Receive Date: 20061122
  Receipt Date: 20061027
  Transmission Date: 20070319
  Serious: Yes (Hospitalization)
  Sender: FDA-Public Use
  Company Number: 20063275

PATIENT
  Sex: Female

DRUGS (1)
  1. LIORESAL [Suspect]
     Indication: MUSCLE SPASTICITY
     Dosage: 500 MCG, DAILY, INTRATHECAL
     Route: 037

REACTIONS (8)
  - CATHETER SITE INFLAMMATION [None]
  - CATHETER SITE RELATED REACTION [None]
  - CSF CELL COUNT INCREASED [None]
  - CSF GLUCOSE ABNORMAL [None]
  - CSF PROTEIN ABNORMAL [None]
  - HEADACHE [None]
  - HYPERSENSITIVITY [None]
  - PYREXIA [None]
